FAERS Safety Report 10073385 (Version 1)
Quarter: 2014Q2

REPORT INFORMATION
  Report Type: Spontaneous
  Country: DE (occurrence: DE)
  Receive Date: 20140411
  Receipt Date: 20140411
  Transmission Date: 20141212
  Serious: Yes (Death, Hospitalization)
  Sender: FDA-Public Use
  Company Number: PHHY2014DE043919

PATIENT
  Age: 71 Year
  Sex: Male

DRUGS (2)
  1. CICLOSPORIN [Suspect]
     Indication: IMMUNOSUPPRESSION
     Dosage: 75 MG, BID
  2. MYCOPHENOLATE MOFETIL [Suspect]
     Indication: IMMUNOSUPPRESSION
     Dosage: 500 MG, BID

REACTIONS (14)
  - Cardiac arrest [Fatal]
  - Metabolic acidosis [Unknown]
  - Renal failure acute [Unknown]
  - Bacterial infection [Unknown]
  - Gastroenteritis [Unknown]
  - Herpes zoster [Unknown]
  - Gas gangrene [Unknown]
  - Clostridial infection [Unknown]
  - Hepatic lesion [Unknown]
  - Sepsis [Unknown]
  - Abdominal pain upper [Unknown]
  - Pyrexia [Unknown]
  - Leukocytosis [Unknown]
  - Transaminases increased [Unknown]
